FAERS Safety Report 8267742-1 (Version None)
Quarter: 2012Q2

REPORT INFORMATION
  Report Type: 
  Country: None (occurrence: None)
  Receive Date: 20120409
  Receipt Date: 20120327
  Transmission Date: 20120825
  Serious: Yes (Other)
  Sender: FDA-Public Use
  Company Number: US-RANBAXY-2012RR-54055

PATIENT
  Sex: Female
  Weight: 58.5 kg

DRUGS (6)
  1. ATORVASTATIN [Suspect]
     Indication: BLOOD CHOLESTEROL INCREASED
     Dosage: 40 MG, UNK
     Route: 048
  2. CLOPIDOGREL [Suspect]
     Indication: FACTOR V LEIDEN MUTATION
     Route: 065
  3. TRICOR [Suspect]
     Indication: FACTOR V LEIDEN MUTATION
     Route: 065
  4. BIAXIN [Suspect]
     Indication: PRODUCT USED FOR UNKNOWN INDICATION
     Route: 065
  5. PROTONIX [Suspect]
     Indication: PRODUCT USED FOR UNKNOWN INDICATION
     Route: 065
  6. WARFARIN SODIUM [Suspect]
     Indication: FACTOR V LEIDEN MUTATION
     Route: 065

REACTIONS (8)
  - ATRIAL FIBRILLATION [None]
  - TRANSIENT ISCHAEMIC ATTACK [None]
  - MALAISE [None]
  - THROMBOSIS [None]
  - FIBROMYALGIA [None]
  - CARDIAC DISORDER [None]
  - ARTHRALGIA [None]
  - FACTOR V LEIDEN MUTATION [None]
